FAERS Safety Report 4305229-9 (Version None)
Quarter: 2004Q1

REPORT INFORMATION
  Report Type: 
  Country: None (occurrence: None)
  Receive Date: 20040226
  Receipt Date: 20031127
  Transmission Date: 20041129
  Serious: Yes (Other)
  Sender: FDA-Public Use
  Company Number: WAES 0311DEU00151

PATIENT
  Age: 86 Year
  Sex: Male
  Weight: 65 kg

DRUGS (3)
  1. BISOPROLOL FUMARATE [Concomitant]
     Indication: HYPERTENSION
     Route: 048
  2. VIOXX [Suspect]
     Indication: SPONDYLOSIS
     Route: 048
     Dates: end: 20030101
  3. VIOXX [Suspect]
     Route: 048
     Dates: start: 20031006, end: 20031007

REACTIONS (2)
  - PULMONARY OEDEMA [None]
  - URINARY RETENTION [None]
